FAERS Safety Report 7821492-1 (Version None)
Quarter: 2011Q4

REPORT INFORMATION
  Report Type: 
  Country: None (occurrence: None)
  Receive Date: 20111018
  Receipt Date: 20111011
  Transmission Date: 20120403
  Serious: Yes (Other)
  Sender: FDA-Public Use
  Company Number: PHHY2011GB89606

PATIENT
  Age: 51 Year
  Sex: Female

DRUGS (2)
  1. LISINOPRIL [Suspect]
     Indication: HYPERTENSION
     Dosage: 2.5 MG, UNK
     Route: 048
     Dates: start: 20110917, end: 20110921
  2. BUDESONIDE [Concomitant]
     Dosage: UNK

REACTIONS (2)
  - MENTAL IMPAIRMENT [None]
  - SUICIDAL IDEATION [None]
